FAERS Safety Report 25244993 (Version 1)
Quarter: 2025Q2

REPORT INFORMATION
  Report Type: Spontaneous
  Country: US (occurrence: None)
  Receive Date: 20250425
  Receipt Date: 20250425
  Transmission Date: 20250716
  Serious: Yes (Hospitalization)
  Sender: FDA-CTU
  Company Number: None

PATIENT
  Age: 33 Year
  Sex: Male

DRUGS (8)
  1. ENVARSUS XR [Suspect]
     Active Substance: TACROLIMUS
     Indication: Renal transplant
     Dosage: 16 MG DAILY ORAL ?
     Route: 048
  2. MYCOPHENOLIC ACID [Suspect]
     Active Substance: MYCOPHENOLIC ACID
     Indication: Renal transplant
     Dosage: 720 MG TWICE A DAY ORAL
     Route: 048
  3. PREVYMIS [Concomitant]
     Active Substance: LETERMOVIR
  4. SULFAMETHOXAZOLE\TRIMETHOPRIM [Concomitant]
     Active Substance: SULFAMETHOXAZOLE\TRIMETHOPRIM
  5. carvediolol [Concomitant]
  6. PREDNISONE [Concomitant]
     Active Substance: PREDNISONE
  7. VALGANCICLOVIR [Concomitant]
     Active Substance: VALGANCICLOVIR
  8. OMEPRAZOLE [Concomitant]
     Active Substance: OMEPRAZOLE

REACTIONS (1)
  - Neutropenia [None]

NARRATIVE: CASE EVENT DATE: 20250416
